FAERS Safety Report 9619297 (Version 1)
Quarter: 2013Q4

REPORT INFORMATION
  Report Type: Spontaneous
  Country: TR (occurrence: TR)
  Receive Date: 20131014
  Receipt Date: 20131014
  Transmission Date: 20140711
  Serious: Yes (Hospitalization)
  Sender: FDA-Public Use
  Company Number: TR-NOVOPROD-389590

PATIENT
  Sex: Male
  Weight: 1.5 kg

DRUGS (4)
  1. LEVEMIR FLEXPEN [Suspect]
     Indication: GESTATIONAL DIABETES
     Dosage: 6 U, QD
     Route: 064
     Dates: start: 20130528, end: 20130614
  2. LEVEMIR FLEXPEN [Suspect]
     Dosage: 6 U, QD
     Route: 063
     Dates: start: 20130614, end: 20130714
  3. HUMALOG [Concomitant]
     Indication: GESTATIONAL DIABETES
     Route: 064
     Dates: start: 20130528, end: 20130714
  4. ALFAMET [Concomitant]
     Indication: HYPERTENSION
     Dosage: 250 MG, 6 TAB, QD
     Route: 064
     Dates: start: 20130506

REACTIONS (2)
  - Premature baby [Recovered/Resolved]
  - Foetal exposure during pregnancy [Recovered/Resolved]
